FAERS Safety Report 4444030-2 (Version None)
Quarter: 2004Q3

REPORT INFORMATION
  Report Type: 
  Country: None (occurrence: None)
  Receive Date: 20040729
  Receipt Date: 20040302
  Transmission Date: 20050211
  Serious: Yes (Other)
  Sender: FDA-Public Use
  Company Number: US-JNJFOC-20031200019

PATIENT
  Age: 62 Year
  Sex: Male

DRUGS (8)
  1. RISPERDAL [Suspect]
     Dosage: 5.5 MG, IN 1 DAY, ORAL
     Route: 048
     Dates: start: 19990501
  2. ROBITUSSIN(GUAIFENESIN) [Concomitant]
  3. ... [Concomitant]
  4. MILK OF MAGNESIA (MAGNESIUM HYDROXIDE) [Concomitant]
  5. AUGMENTI (CLAVULIN) [Concomitant]
  6. ZANTAC [Concomitant]
  7. FERROUS SULFTE (FERROUS SULFATE) [Concomitant]
  8. PROTONIX [Concomitant]

REACTIONS (2)
  - COLONIC POLYP [None]
  - RENAL FAILURE [None]
